FAERS Safety Report 4561401-4 (Version None)
Quarter: 2005Q1

REPORT INFORMATION
  Report Type: 
  Country: None (occurrence: None)
  Receive Date: 20050124
  Receipt Date: 20050112
  Transmission Date: 20050727
  Serious: Yes (Other)
  Sender: FDA-Public Use
  Company Number: 2005013308

PATIENT
  Sex: Male

DRUGS (3)
  1. XALATAN [Suspect]
     Indication: GLAUCOMA
     Dosage: INTRAOCULAR
     Route: 031
  2. COSOPT [Concomitant]
  3. BRIMONIDINE TARTRATE (BRIMONIDINE TARTRATE) [Concomitant]

REACTIONS (1)
  - LENS IMPLANT [None]
